FAERS Safety Report 5701456-4 (Version None)
Quarter: 2008Q2

REPORT INFORMATION
  Report Type: 
  Country: None (occurrence: None)
  Receive Date: 20080407
  Receipt Date: 20080327
  Transmission Date: 20081010
  Serious: Yes (Other)
  Sender: FDA-Public Use
  Company Number: 2008-00767

PATIENT
  Sex: Female

DRUGS (8)
  1. VELCADE [Suspect]
     Indication: MULTIPLE MYELOMA
     Dosage: 1.3 MG/M2,; 1 MG/M2,
     Dates: start: 20071112
  2. VELCADE [Suspect]
     Indication: MULTIPLE MYELOMA
     Dosage: 1.3 MG/M2,; 1 MG/M2,
     Dates: start: 20080325
  3. DEXAMETHASONE TAB [Concomitant]
  4. METOCLOPRAMIDE [Concomitant]
  5. CO-TRIMOXAZOLE (SULFAMETHOXAZOLE, TRIMETHOPRIUM) [Concomitant]
  6. ACYCLOVIR [Concomitant]
  7. LANSOPRAZOLE [Concomitant]
  8. FLUCONAZOLE [Concomitant]

REACTIONS (3)
  - DIARRHOEA [None]
  - NEUROPATHY PERIPHERAL [None]
  - PAIN [None]
